FAERS Safety Report 5467995-9 (Version None)
Quarter: 2007Q3

REPORT INFORMATION
  Report Type: 
  Country: None (occurrence: None)
  Receive Date: 20070925
  Receipt Date: 20070925
  Transmission Date: 20080115
  Serious: Yes (Other)
  Sender: FDA-Public Use
  Company Number: None

PATIENT
  Sex: Female
  Weight: 99.3377 kg

DRUGS (1)
  1. JANUMET [Suspect]
     Indication: DIABETES MELLITUS INADEQUATE CONTROL
     Dosage: 2 X D

REACTIONS (3)
  - INSOMNIA [None]
  - IRRITABILITY [None]
  - MOOD ALTERED [None]
